FAERS Safety Report 10934026 (Version 2)
Quarter: 2015Q2

REPORT INFORMATION
  Report Type: Report from Study
  Country: NZ (occurrence: NZ)
  Receive Date: 20150320
  Receipt Date: 20150409
  Transmission Date: 20150821
  Serious: Yes (Death, Hospitalization, Other)
  Sender: FDA-Public Use
  Company Number: PHHY2013NZ079812

PATIENT
  Age: 64 Year
  Sex: Male

DRUGS (10)
  1. SIMVASTATIN. [Concomitant]
     Active Substance: SIMVASTATIN
     Indication: PRODUCT USED FOR UNKNOWN INDICATION
     Dosage: 20 MG, AT NIGHT
     Route: 065
  2. CLONAZEPAM. [Concomitant]
     Active Substance: CLONAZEPAM
     Indication: PRODUCT USED FOR UNKNOWN INDICATION
     Dosage: 1.5 MG, AT NIGHT
     Route: 065
  3. VENLAFAXINE XR [Concomitant]
     Active Substance: VENLAFAXINE HYDROCHLORIDE
     Indication: PRODUCT USED FOR UNKNOWN INDICATION
     Dosage: 225 MG, IN MORNING
     Route: 065
  4. LAXSOL [Concomitant]
     Indication: PRODUCT USED FOR UNKNOWN INDICATION
     Dosage: 2 DF, AT NIGHT
     Route: 065
  5. IPRATROPIUM [Concomitant]
     Active Substance: IPRATROPIUM
     Indication: PRODUCT USED FOR UNKNOWN INDICATION
     Dosage: 2 SPRAYS UNDER TONGUE IN NIGHT
     Route: 060
  6. PARACETAMOL [Concomitant]
     Active Substance: ACETAMINOPHEN
     Indication: PRODUCT USED FOR UNKNOWN INDICATION
     Dosage: 1 G, QID
     Route: 065
  7. LACTULOSE. [Concomitant]
     Active Substance: LACTULOSE
     Indication: PRODUCT USED FOR UNKNOWN INDICATION
     Dosage: 20 ML, IN MORNING
     Route: 048
  8. CLOZARIL [Suspect]
     Active Substance: CLOZAPINE
     Indication: SCHIZOPHRENIA
     Dosage: 62.5 MG DAILY (25 MG AT MID DAY AND 37.5 IN NIGHT)
     Route: 048
     Dates: start: 20130619, end: 20150216
  9. MADOPAR [Concomitant]
     Active Substance: BENSERAZIDE HYDROCHLORIDE\LEVODOPA
     Indication: PRODUCT USED FOR UNKNOWN INDICATION
     Dosage: 2 DF, QID
     Route: 065
  10. RIVASTIGMINE [Concomitant]
     Active Substance: RIVASTIGMINE
     Indication: PRODUCT USED FOR UNKNOWN INDICATION
     Dosage: 9.5 MG, AT NIGHT
     Route: 065

REACTIONS (15)
  - Confusional state [Unknown]
  - Neutropenia [Fatal]
  - White blood cell count increased [Recovered/Resolved]
  - Somnolence [Unknown]
  - Monocyte count increased [Unknown]
  - Sepsis [Fatal]
  - White blood cell count increased [Not Recovered/Not Resolved]
  - Lower respiratory tract infection [Fatal]
  - Pneumonia [Fatal]
  - Pneumonia aspiration [Unknown]
  - Hyporesponsive to stimuli [Unknown]
  - Lymphocyte count increased [Unknown]
  - Haemoglobin decreased [Recovered/Resolved]
  - Neutrophil count increased [Not Recovered/Not Resolved]
  - Infection [Unknown]

NARRATIVE: CASE EVENT DATE: 20130722
